FAERS Safety Report 6930066-6 (Version None)
Quarter: 2010Q3

REPORT INFORMATION
  Report Type: 
  Country: None (occurrence: None)
  Receive Date: 20100818
  Receipt Date: 20100811
  Transmission Date: 20110219
  Serious: Yes (Hospitalization, Other)
  Sender: FDA-Public Use
  Company Number: US-SANOFI-AVENTIS-2010SA047887

PATIENT
  Age: 46 Year
  Sex: Male

DRUGS (4)
  1. LANTUS [Suspect]
     Dosage: DOSE:50 UNIT(S)
     Route: 058
  2. OPTICLICK [Suspect]
  3. NOVOLOG [Concomitant]
     Dosage: PER SLIDING SCALE
  4. ALL OTHER THERAPEUTIC PRODUCTS [Concomitant]

REACTIONS (3)
  - FOOT AMPUTATION [None]
  - LOCALISED INFECTION [None]
  - TOE AMPUTATION [None]
